FAERS Safety Report 9351376 (Version 1)
Quarter: 2013Q2

REPORT INFORMATION
  Report Type: Spontaneous
  Country: GB (occurrence: GB)
  Receive Date: 20130617
  Receipt Date: 20130617
  Transmission Date: 20140414
  Serious: Yes (Other)
  Sender: FDA-Public Use
  Company Number: GB-BAXTER-2013BAX021789

PATIENT
  Sex: 0

DRUGS (2)
  1. TISSEEL READY TO USE SOLUTION FOR SEALANT [Suspect]
     Indication: SPINAL LAMINECTOMY
     Route: 065
  2. TISSEEL READY TO USE SOLUTION FOR SEALANT [Suspect]
     Indication: INTERVERTEBRAL DISC OPERATION

REACTIONS (2)
  - Dysuria [Recovered/Resolved]
  - Post procedural complication [Recovered/Resolved]
